FAERS Safety Report 7941942-X (Version None)
Quarter: 2011Q4

REPORT INFORMATION
  Report Type: 
  Country: None (occurrence: None)
  Receive Date: 20111122
  Receipt Date: 20111108
  Transmission Date: 20120403
  Serious: Yes (Hospitalization)
  Sender: FDA-Public Use
  Company Number: 2011-493

PATIENT
  Age: 56 Year
  Sex: Male

DRUGS (2)
  1. PRIALT [Suspect]
     Indication: PAIN
     Dosage: 0.27 UG, ONCE/HOUR, INTRATHECAL
     Route: 037
     Dates: start: 20110530, end: 20110922
  2. MORPHINE SULFATE [Suspect]
     Dosage: ONCE/HOUR, INTRATHECAL
     Route: 037
     Dates: start: 20110530

REACTIONS (2)
  - PSYCHOMOTOR HYPERACTIVITY [None]
  - PSYCHOTIC DISORDER [None]
